FAERS Safety Report 25369937 (Version 1)
Quarter: 2025Q2

REPORT INFORMATION
  Report Type: Spontaneous
  Country: FR (occurrence: FR)
  Receive Date: 20250528
  Receipt Date: 20250528
  Transmission Date: 20250716
  Serious: Yes (Other)
  Sender: MYLAN
  Company Number: None

PATIENT
  Age: 78 Year
  Sex: Female

DRUGS (8)
  1. FENTANYL [Interacting]
     Active Substance: FENTANYL
     Indication: Pain
     Dosage: 12 MICROGRAM, QH
     Dates: start: 20250501, end: 20250504
  2. FENTANYL [Interacting]
     Active Substance: FENTANYL
     Dosage: 12 MICROGRAM, QH
     Route: 062
     Dates: start: 20250501, end: 20250504
  3. FENTANYL [Interacting]
     Active Substance: FENTANYL
     Dosage: 12 MICROGRAM, QH
     Route: 062
     Dates: start: 20250501, end: 20250504
  4. FENTANYL [Interacting]
     Active Substance: FENTANYL
     Dosage: 12 MICROGRAM, QH
     Dates: start: 20250501, end: 20250504
  5. PREGABALIN [Interacting]
     Active Substance: PREGABALIN
     Indication: Pain
  6. PREGABALIN [Interacting]
     Active Substance: PREGABALIN
     Route: 048
  7. PREGABALIN [Interacting]
     Active Substance: PREGABALIN
     Route: 048
  8. PREGABALIN [Interacting]
     Active Substance: PREGABALIN

REACTIONS (3)
  - Confusional state [Recovered/Resolved]
  - Hallucination [Recovered/Resolved]
  - Drug interaction [Unknown]

NARRATIVE: CASE EVENT DATE: 20250502
